FAERS Safety Report 5636895-3 (Version None)
Quarter: 2008Q1

REPORT INFORMATION
  Report Type: 
  Country: None (occurrence: None)
  Receive Date: 20080225
  Receipt Date: 20080211
  Transmission Date: 20080703
  Serious: Yes (Hospitalization)
  Sender: FDA-Public Use
  Company Number: GB-ROCHE-523628

PATIENT
  Age: 24 Year
  Sex: Female

DRUGS (1)
  1. ISOTRETINOIN [Suspect]
     Indication: ACNE
     Dosage: (0.5MG/KG/DAY)
     Route: 065

REACTIONS (4)
  - ANAEMIA [None]
  - ANAEMIA FOLATE DEFICIENCY [None]
  - ANAEMIA VITAMIN B12 DEFICIENCY [None]
  - NEUTROPENIA [None]
